FAERS Safety Report 6309121-X (Version None)
Quarter: 2009Q3

REPORT INFORMATION
  Report Type: 
  Country: None (occurrence: None)
  Receive Date: 20090812
  Receipt Date: 20090806
  Transmission Date: 20100115
  Serious: Yes (Hospitalization, Disabling, Other)
  Sender: FDA-Public Use
  Company Number: 2009SP016107

PATIENT
  Age: 37 Year
  Sex: Male
  Weight: 58 kg

DRUGS (14)
  1. CELESTAMINE TAB [Suspect]
     Indication: RHINITIS ALLERGIC
     Dosage: QD, PO
     Route: 048
     Dates: end: 20001201
  2. CELESTAMINE TAB [Suspect]
     Indication: RHINITIS ALLERGIC
     Dosage: QD, PO
     Route: 048
     Dates: start: 20001201, end: 20011201
  3. STEROIDS (CORTICOSTEROIDS) [Suspect]
     Indication: DERMATITIS ATOPIC
     Dosage: TOP
     Route: 061
  4. NEORAL [Suspect]
     Indication: DERMATITIS ATOPIC
     Dosage: 250 MG, PO, 100 MG, PO, 75 MG, PO, 50 MG, PO
     Route: 048
     Dates: start: 20030301, end: 20030411
  5. NEORAL [Suspect]
     Indication: DERMATITIS ATOPIC
     Dosage: 250 MG, PO, 100 MG, PO, 75 MG, PO, 50 MG, PO
     Route: 048
     Dates: start: 20020201
  6. NEORAL [Suspect]
     Indication: DERMATITIS ATOPIC
     Dosage: 250 MG, PO, 100 MG, PO, 75 MG, PO, 50 MG, PO
     Route: 048
     Dates: start: 20020501
  7. NEORAL [Suspect]
     Indication: DERMATITIS ATOPIC
     Dosage: 250 MG, PO, 100 MG, PO, 75 MG, PO, 50 MG, PO
     Route: 048
     Dates: start: 20021101
  8. DIACORT (DIFLORASONE DIACETATE) [Suspect]
     Indication: RHINITIS ALLERGIC
     Dosage: TOP
     Route: 061
     Dates: start: 20000101, end: 20010201
  9. SRENDAM (SUPROFEN) [Suspect]
     Indication: RHINITIS ALLERGIC
     Dosage: TOP
     Route: 061
     Dates: start: 20000101, end: 20010201
  10. PROTOPIC [Concomitant]
  11. RINDERON V [Concomitant]
  12. LOCOID [Concomitant]
  13. VISDERM [Concomitant]
  14. ALESION [Concomitant]

REACTIONS (6)
  - ANAPLASTIC LARGE CELL LYMPHOMA T- AND NULL-CELL TYPES [None]
  - GLAUCOMA [None]
  - KERATOCONUS [None]
  - LYMPHADENOPATHY [None]
  - RASH [None]
  - SECONDARY ADRENOCORTICAL INSUFFICIENCY [None]
